FAERS Safety Report 7630656-1 (Version None)
Quarter: 2011Q3

REPORT INFORMATION
  Report Type: 
  Country: None (occurrence: None)
  Receive Date: 20110722
  Receipt Date: 20110713
  Transmission Date: 20111222
  Serious: Yes (Other)
  Sender: FDA-Public Use
  Company Number: US-ASTRAZENECA-2011SE42135

PATIENT

DRUGS (31)
  1. ARICEPT [Concomitant]
     Indication: DEMENTIA
  2. SYMBICORT [Concomitant]
  3. IMITREX [Concomitant]
  4. BENTYL [Concomitant]
  5. NAMENDA [Concomitant]
     Indication: DEMENTIA
  6. MULTI-VITAMIN [Concomitant]
  7. AGGRENOX [Concomitant]
     Dosage: 20-200 MG
  8. MORPHINE [Concomitant]
  9. CORTISONE ACETATE [Concomitant]
     Route: 008
  10. MIRALAX [Concomitant]
     Dosage: 2-8 CAPS PER DAY AS NEEDED
  11. VITAMIN D [Concomitant]
     Dosage: -50,000 IUS 1X PER WEEK
  12. ADDERALL 10 [Concomitant]
     Dosage: 1-2 TABLETS AS NEEDED
  13. EFFEXOR XR [Concomitant]
  14. ADDERALL XR 10 [Concomitant]
  15. LECITHIN [Concomitant]
  16. CLONAZEPAM [Concomitant]
     Indication: CONVULSION
  17. FORTEO [Concomitant]
  18. DURAGESIC-100 [Concomitant]
  19. NAMENDA [Concomitant]
     Indication: BRAIN INJURY
  20. PROVENTIL [Concomitant]
     Dosage: 2-3 PUFFS AS NEENED
  21. VITAMIN B COMPLEX CAP [Concomitant]
  22. CALCIUM CARBONATE [Concomitant]
  23. EX-LAX [Concomitant]
  24. SEROQUEL [Suspect]
     Dosage: 1/2 TO 1 TABLET AT BEDTIME
     Route: 048
  25. ALLEGRA D 24 HOUR [Concomitant]
     Dosage: 60-120 ER 1-2 TABLETS AS NEEDED
  26. PREVACID [Concomitant]
  27. ARICEPT [Concomitant]
     Indication: BRAIN INJURY
  28. ANTIOXIDANT [Concomitant]
  29. HYDROXYZ PAM [Concomitant]
     Indication: MULTIPLE ALLERGIES
  30. HYDROXYZ PAM [Concomitant]
     Indication: CONVULSION
  31. METFORMIN HCL [Concomitant]
     Indication: TYPE 2 DIABETES MELLITUS

REACTIONS (7)
  - BRAIN INJURY [None]
  - DEMENTIA [None]
  - CONVULSION [None]
  - TYPE 2 DIABETES MELLITUS [None]
  - HYPERSENSITIVITY [None]
  - MIGRAINE [None]
  - DYSKINESIA [None]
